FAERS Safety Report 5881158-4 (Version None)
Quarter: 2008Q3

REPORT INFORMATION
  Report Type: 
  Country: None (occurrence: None)
  Receive Date: 20080912
  Receipt Date: 20080620
  Transmission Date: 20090109
  Serious: No
  Sender: FDA-Public Use
  Company Number: US-ABBOTT-08P-163-0458893-00

PATIENT
  Sex: Female

DRUGS (16)
  1. HUMIRA [Suspect]
     Indication: RHEUMATOID ARTHRITIS
     Route: 058
     Dates: start: 20080416, end: 20080611
  2. HUMIRA [Suspect]
     Route: 058
     Dates: start: 20080625
  3. HYDROXYCHLOROQUINE [Concomitant]
     Indication: RHEUMATOID ARTHRITIS
     Route: 048
  4. PREGABALIN [Concomitant]
     Indication: PAIN
     Route: 048
  5. OLMESARTAN MEDOXOMIL [Concomitant]
     Indication: OEDEMA PERIPHERAL
  6. RABEPRAZOLE SODIUM [Concomitant]
     Indication: GASTRIC DISORDER
  7. METHOTREXATE [Concomitant]
     Indication: RHEUMATOID ARTHRITIS
     Route: 030
  8. DULOXETINE HYDROCHLORIDE [Concomitant]
     Indication: DEPRESSION
     Route: 048
  9. ESZOPICLONE [Concomitant]
     Indication: SLEEP DISORDER
     Route: 048
  10. METHADONE HCL [Concomitant]
     Indication: PAIN
     Route: 048
  11. TYLOX [Concomitant]
     Indication: PAIN
     Route: 048
  12. FOLIC ACID [Concomitant]
     Indication: DRUG USE FOR UNKNOWN INDICATION
     Route: 048
  13. PHENERGAN HCL [Concomitant]
     Indication: NAUSEA
     Route: 048
  14. LIDOCAINE [Concomitant]
     Indication: PAIN
     Dosage: PATCH
     Route: 062
  15. METHYLPREDNISOLONE 16MG TAB [Concomitant]
     Indication: DRUG USE FOR UNKNOWN INDICATION
     Route: 048
  16. ONDANSETRON [Concomitant]
     Indication: NAUSEA
     Route: 048

REACTIONS (1)
  - CELLULITIS [None]
